FAERS Safety Report 16201699 (Version 1)
Quarter: 2019Q2

REPORT INFORMATION
  Report Type: Spontaneous
  Country: US (occurrence: US)
  Receive Date: 20190416
  Receipt Date: 20190416
  Transmission Date: 20190711
  Serious: No
  Sender: FDA-Public Use
  Company Number: US-TRIS PHARMA, INC.-2019TRISPO00364

PATIENT

DRUGS (2)
  1. QUILLIVANT XR [Suspect]
     Active Substance: METHYLPHENIDATE HYDROCHLORIDE
     Indication: ATTENTION DEFICIT/HYPERACTIVITY DISORDER
     Dosage: 3 MG WHEN WAKES UP AND 1MG AROUND LUNCH TIME
     Route: 065
     Dates: end: 20190305
  2. GUANFACINE. [Concomitant]
     Active Substance: GUANFACINE
     Indication: SLEEP DISORDER
     Dosage: 1 MG, DAILY AT NIGHT
     Route: 065
     Dates: start: 201903

REACTIONS (3)
  - Product use issue [Unknown]
  - Condition aggravated [Not Recovered/Not Resolved]
  - Product dose omission [Unknown]

NARRATIVE: CASE EVENT DATE: 20190305
